FAERS Safety Report 6644076-X (Version None)
Quarter: 2010Q1

REPORT INFORMATION
  Report Type: 
  Country: None (occurrence: None)
  Receive Date: 20100322
  Receipt Date: 20100308
  Transmission Date: 20100710
  Serious: Yes (Other)
  Sender: FDA-Public Use
  Company Number: PHEH2007US12652

PATIENT
  Sex: Female

DRUGS (42)
  1. ZOMETA [Suspect]
     Indication: MULTIPLE MYELOMA
     Dosage: 4 MG, QMO
     Route: 042
     Dates: end: 20061001
  2. ATIVAN [Concomitant]
  3. VICODIN [Concomitant]
  4. AMBIEN [Concomitant]
     Indication: INSOMNIA
     Dosage: 5 MG / EVERY NIGHT AT BEDTIME
     Route: 048
  5. LEVOTHYROXINE SODIUM [Concomitant]
  6. ACIPHEX [Concomitant]
  7. ZOLOFT [Concomitant]
     Dosage: UNK
  8. XELODA [Concomitant]
     Dosage: 150MG BID
  9. ASPIRIN [Concomitant]
  10. AMPICILLIN [Concomitant]
     Dosage: 875MG BID X + DAYS
  11. RADIATION [Concomitant]
  12. ABRAXANE [Concomitant]
     Dosage: WEEKLY
  13. AVASTIN [Concomitant]
  14. NORCO [Concomitant]
  15. CYMBALTA [Concomitant]
  16. CEFTRIAXONE [Concomitant]
     Dosage: UNK
  17. DILAUDID [Concomitant]
     Indication: PAIN
     Dosage: 2 MG
     Route: 048
  18. PERCOCET [Concomitant]
     Dosage: UNK
  19. CAPECITABINE [Concomitant]
     Dosage: UNK
  20. SYNTHROID [Concomitant]
     Dosage: 0.05 MG  / QD
  21. RITALIN [Concomitant]
     Dosage: 2.5 MG / DAILY
  22. FENTANYL [Concomitant]
     Dosage: UNK
     Route: 062
  23. HYDROCODONE BITARTRATE AND ACETAMINOPHEN [Concomitant]
     Dosage: 10 MG/325 MG / ONE TABLE EVERY 6 HRS
     Route: 048
  24. CEPHALEXIN [Concomitant]
     Dosage: 500 MG / 4 X DAILY
     Route: 048
  25. VANCOMYCIN [Concomitant]
     Dosage: UNK
  26. NAPROSYN [Concomitant]
     Dosage: UNK
  27. KEFLEX [Concomitant]
     Dosage: 500 MG, UNK
  28. ARANESP [Concomitant]
     Dosage: 200 MCG
  29. VANCOMYCIN HCL [Concomitant]
     Dosage: 250 MG /TWICE WEEKLY
     Route: 048
  30. PROVIGIL [Concomitant]
     Dosage: 100 MG / DAILY
     Route: 048
  31. CIPROFLOXACIN [Concomitant]
     Dosage: 205 MG / EVERY 12 HRS
     Route: 048
  32. ZOFRAN [Concomitant]
     Dosage: 9 MG / PRN
  33. COLACE [Concomitant]
     Dosage: UNK
  34. LORAZEPAM [Concomitant]
     Dosage: 1 MG / PRN
  35. DOXIL [Concomitant]
     Dosage: UNK
  36. NIACIN [Concomitant]
     Dosage: UNK
  37. NABUMETONE [Concomitant]
     Dosage: 500 MG / BID
  38. FEMARA [Concomitant]
     Dosage: UNK
  39. TAXOTERE [Concomitant]
     Dosage: 160 MG, UNK
  40. NEULASTA [Concomitant]
  41. DEXAMETHASONE [Concomitant]
     Dosage: 8 MG, EVERY THREE WEEKS
  42. LASIX [Concomitant]
     Dosage: 10 MG, UNK

REACTIONS (42)
  - ACANTHOLYSIS [None]
  - ANHEDONIA [None]
  - ANXIETY [None]
  - ARTHRALGIA [None]
  - BACK PAIN [None]
  - BONE PAIN [None]
  - BREAST CANCER METASTATIC [None]
  - BREAST OPERATION [None]
  - CHEST PAIN [None]
  - CYST [None]
  - DEFORMITY [None]
  - DISCOMFORT [None]
  - EMOTIONAL DISTRESS [None]
  - EPISTAXIS [None]
  - EYE PAIN [None]
  - FIBROMYALGIA [None]
  - GINGIVAL BLEEDING [None]
  - GINGIVITIS [None]
  - HIGH FREQUENCY ABLATION [None]
  - HYPOPHAGIA [None]
  - IMPETIGO [None]
  - INJURY [None]
  - INTERVERTEBRAL DISC DISORDER [None]
  - JOINT STIFFNESS [None]
  - METASTASES TO LIVER [None]
  - METASTASES TO LUNG [None]
  - METASTASES TO SPINE [None]
  - NASAL DISORDER [None]
  - OEDEMA [None]
  - ORAL PAIN [None]
  - OSTEONECROSIS [None]
  - OSTEOSCLEROSIS [None]
  - PAIN [None]
  - PYREXIA [None]
  - RHINORRHOEA [None]
  - SOMNOLENCE [None]
  - STOMATITIS [None]
  - THROAT IRRITATION [None]
  - TOOTH FRACTURE [None]
  - TOOTH INFECTION [None]
  - TOOTH REPAIR [None]
  - TOOTHACHE [None]
